FAERS Safety Report 19498838 (Version 4)
Quarter: 2021Q3

REPORT INFORMATION
  Report Type: Spontaneous
  Country: US (occurrence: US)
  Receive Date: 20210706
  Receipt Date: 20210805
  Transmission Date: 20211014
  Serious: Yes (Other)
  Sender: FDA-Public Use
  Company Number: US-ORGANON-O2107USA000194

PATIENT
  Age: 27 Year
  Sex: Female
  Weight: 63.5 kg

DRUGS (1)
  1. NEXPLANON [Suspect]
     Active Substance: ETONOGESTREL
     Indication: CONTRACEPTION
     Dosage: 1 DOSAGE FORM, 68 MG (MILLIGRAM) ROD, FOR 3 YEARS (LEFT UPPER ARM)
     Route: 058
     Dates: start: 201702, end: 202107

REACTIONS (5)
  - Seizure [Not Recovered/Not Resolved]
  - Product use issue [Unknown]
  - Device breakage [Recovered/Resolved]
  - Confusional state [Recovered/Resolved]
  - Incorrect product administration duration [Unknown]

NARRATIVE: CASE EVENT DATE: 2020
